FAERS Safety Report 8797631 (Version 1)
Quarter: 2012Q4

REPORT INFORMATION
  Report Type: 
  Country: SG (occurrence: SG)
  Receive Date: 20120920
  Receipt Date: 20120920
  Transmission Date: 20130627
  Serious: Yes (Other)
  Sender: FDA-Public Use
  Company Number: SG-BAYER-2012-097699

PATIENT
  Age: 24 Year
  Sex: Female

DRUGS (1)
  1. CIPROFLOXACIN MONOHYDROCHLORIDE [Suspect]
     Route: 048

REACTIONS (3)
  - Face oedema [Unknown]
  - Stridor [Unknown]
  - Rash [Unknown]
